FAERS Safety Report 8190046-2 (Version None)
Quarter: 2012Q1

REPORT INFORMATION
  Report Type: 
  Country: None (occurrence: None)
  Receive Date: 20120307
  Receipt Date: 20120223
  Transmission Date: 20120608
  Serious: Yes (Hospitalization)
  Sender: FDA-Public Use
  Company Number: GB-CELGENEUS-167-C5013-10121563

PATIENT
  Sex: Male
  Weight: 91.4 kg

DRUGS (6)
  1. LENALIDOMIDE [Suspect]
     Indication: PROSTATE CANCER
     Route: 048
     Dates: start: 20101006
  2. DOCETAXEL [Suspect]
     Indication: PROSTATE CANCER
     Route: 065
     Dates: start: 20101006
  3. DOCETAXEL [Suspect]
     Route: 065
     Dates: start: 20101201
  4. LENALIDOMIDE [Suspect]
     Route: 048
     Dates: start: 20101201, end: 20101214
  5. PREDNISONE TAB [Suspect]
     Indication: PROSTATE CANCER
     Route: 065
     Dates: start: 20101006
  6. PREDNISONE TAB [Suspect]
     Route: 065
     Dates: start: 20101201, end: 20101214

REACTIONS (2)
  - ORAL CANDIDIASIS [None]
  - ASTHENIA [None]
